FAERS Safety Report 9935639 (Version 3)
Quarter: 2014Q2

REPORT INFORMATION
  Report Type: Report from Study
  Country: CA (occurrence: CA)
  Receive Date: 20140228
  Receipt Date: 20140410
  Transmission Date: 20141212
  Serious: Yes (Hospitalization)
  Sender: FDA-Public Use
  Company Number: PHHO2013CA015961

PATIENT
  Age: 84 Year
  Sex: Male
  Weight: 64 kg

DRUGS (16)
  1. BLINDED ALISKIREN [Suspect]
     Indication: CARDIAC FAILURE
     Dosage: CODE NOT BROKEN
     Route: 048
     Dates: start: 20101213, end: 20120308
  2. BLINDED ENALAPRIL [Suspect]
     Indication: CARDIAC FAILURE
     Dosage: CODE NOT BROKEN
     Route: 048
     Dates: start: 20101213, end: 20120308
  3. BLINDED NO TREATMENT RECEIVED [Suspect]
     Indication: CARDIAC FAILURE
     Dosage: CODE NOT BROKEN
     Route: 048
     Dates: start: 20101213, end: 20120308
  4. ACETYLSALICYLIC ACID [Suspect]
     Indication: PROPHYLAXIS
     Dosage: 80 MG, QD (80 MG, DIE)
     Route: 048
     Dates: start: 20070823, end: 20131204
  5. XARELTO [Suspect]
     Indication: THROMBOSIS PROPHYLAXIS
     Dosage: 15 MG, QD(15 MG, DIE)
     Route: 048
     Dates: start: 20131129, end: 20131204
  6. ATORVASTATIN [Concomitant]
     Indication: DYSLIPIDAEMIA
     Dosage: 40 MG, QD(40 MG, DIE)
     Route: 048
     Dates: start: 20131129
  7. ENALAPRIL [Concomitant]
     Indication: PROPHYLAXIS
     Dosage: 2.5 MG, BID
     Route: 048
     Dates: start: 20131129, end: 20131204
  8. ENALAPRIL [Concomitant]
     Dosage: UNK
     Dates: start: 20131211
  9. METOPROLOL [Concomitant]
     Indication: CARDIOVASCULAR EVENT PROPHYLAXIS
     Dosage: 37.5 MG, BID
     Route: 048
     Dates: start: 20131129, end: 20131204
  10. FUROSEMIDE [Concomitant]
     Indication: CARDIOVASCULAR EVENT PROPHYLAXIS
     Dosage: 20 MG, QD(20 MG, DIE)
     Route: 048
     Dates: start: 20131129
  11. TAMSULOSIN [Concomitant]
     Indication: PROSTATISM
     Dosage: 0.4 MG, QD(0.4 MG, DIE)
     Route: 048
     Dates: start: 20131128
  12. AMIODARONE [Concomitant]
     Indication: ARRHYTHMIA PROPHYLAXIS
     Dosage: 200 MG, QD(40 MG, DIE)
     Route: 048
     Dates: start: 20131129
  13. PANTOPRAZOLE [Concomitant]
     Indication: PROPHYLAXIS
     Dosage: 40 MG, QD(40 MG, DIE)
     Route: 048
     Dates: start: 20120601
  14. SALBUTAMOL [Concomitant]
     Indication: CHRONIC OBSTRUCTIVE PULMONARY DISEASE
     Dosage: 200 MG, PRN
     Route: 055
     Dates: start: 201312
  15. TIOTROPIUM [Concomitant]
     Indication: CHRONIC OBSTRUCTIVE PULMONARY DISEASE
     Dosage: 18 UG, QD (18 UG DIE)
     Route: 055
     Dates: start: 201312
  16. FLUTICASONE [Concomitant]
     Indication: CHRONIC OBSTRUCTIVE PULMONARY DISEASE
     Dosage: 250 UG, BID
     Route: 055
     Dates: start: 201312

REACTIONS (1)
  - Anaemia [Recovered/Resolved]
